FAERS Safety Report 18264054 (Version 1)
Quarter: 2020Q3

REPORT INFORMATION
  Report Type: Spontaneous
  Country: US (occurrence: US)
  Receive Date: 20200914
  Receipt Date: 20200914
  Transmission Date: 20201103
  Serious: No
  Sender: FDA-Public Use
  Company Number: US-TEVA-2020-US-1826070

PATIENT
  Age: 64 Year
  Sex: Female

DRUGS (1)
  1. ALBUTEROL SULFATE HFA INHALATION METERED DOSE AEROSOL TEVA [Suspect]
     Active Substance: ALBUTEROL SULFATE
     Route: 065

REACTIONS (5)
  - Reaction to excipient [Unknown]
  - Product substitution issue [Unknown]
  - Palpitations [Not Recovered/Not Resolved]
  - Device malfunction [Unknown]
  - Burning sensation [Unknown]
